FAERS Safety Report 15195779 (Version 3)
Quarter: 2019Q3

REPORT INFORMATION
  Report Type: Spontaneous
  Country: US (occurrence: US)
  Receive Date: 20180725
  Receipt Date: 20190717
  Transmission Date: 20191004
  Serious: Yes (Hospitalization)
  Sender: FDA-Public Use
  Company Number: US-PFIZER INC-2018292020

PATIENT
  Age: 40 Year
  Sex: Female
  Weight: 108.84 kg

DRUGS (7)
  1. COSENTYX [Concomitant]
     Active Substance: SECUKINUMAB
     Dosage: 300 MG, MONTHLY [ 300 MG SHOTS, 1/MO (MONTH) 300MG]
  2. LYRICA [Suspect]
     Active Substance: PREGABALIN
     Indication: PERIPHERAL SWELLING
  3. LYRICA [Suspect]
     Active Substance: PREGABALIN
     Indication: ARTHRALGIA
     Dosage: 300 MG, 1X/DAY (BEFORE BED)
     Dates: start: 2017
  4. NUVIGIL [Concomitant]
     Active Substance: ARMODAFINIL
     Dosage: 250 MG, DAILY
  5. LYRICA [Suspect]
     Active Substance: PREGABALIN
     Indication: PSORIATIC ARTHROPATHY
     Dosage: 150 MG, 2X/DAY
     Dates: start: 2012, end: 20180714
  6. WELLBUTRIN [Concomitant]
     Active Substance: BUPROPION HYDROCHLORIDE
     Dosage: UNK (300/ DAY)
  7. LYRICA [Suspect]
     Active Substance: PREGABALIN
     Indication: PAIN IN EXTREMITY
     Dosage: [450 X1 DAY EVENING]

REACTIONS (13)
  - Malaise [Unknown]
  - Asthenia [Unknown]
  - Headache [Unknown]
  - Memory impairment [Not Recovered/Not Resolved]
  - Hot flush [Recovered/Resolved]
  - Feeling hot [Not Recovered/Not Resolved]
  - Muscle twitching [Not Recovered/Not Resolved]
  - Insomnia [Unknown]
  - Pruritus [Unknown]
  - Drug ineffective for unapproved indication [Not Recovered/Not Resolved]
  - Withdrawal syndrome [Not Recovered/Not Resolved]
  - Feeling abnormal [Not Recovered/Not Resolved]
  - Off label use [Unknown]

NARRATIVE: CASE EVENT DATE: 2012
